FAERS Safety Report 8111638 (Version 4)
Quarter: 2012Q4

REPORT INFORMATION
  Report Type: 
  Country: US (occurrence: US)
  Receive Date: 20110829
  Receipt Date: 20121206
  Transmission Date: 20130627
  Serious: Yes (Hospitalization)
  Sender: FDA-Public Use
  Company Number: US-BAYER-2011-075412

PATIENT
  Age: 45 Year
  Sex: Female

DRUGS (5)
  1. YASMIN [Suspect]
     Dosage: UNK
     Dates: start: 200108, end: 200109
  2. ALEVE [Concomitant]
     Indication: PAIN
  3. MOTRIN [Concomitant]
     Indication: PAIN
  4. MACROBID [Concomitant]
     Dosage: 100 mg, UNK
  5. PHENAZOPYRIDINE [Concomitant]

REACTIONS (5)
  - Deep vein thrombosis [None]
  - Thrombosis [Recovered/Resolved]
  - Injury [Recovered/Resolved]
  - Pain [Recovered/Resolved]
  - Off label use [None]
